FAERS Safety Report 17460977 (Version 1)
Quarter: 2020Q1

REPORT INFORMATION
  Report Type: Spontaneous
  Country: US (occurrence: US)
  Receive Date: 20200226
  Receipt Date: 20200226
  Transmission Date: 20200409
  Serious: Yes (Disabling)
  Sender: FDA-Public Use
  Company Number: None

PATIENT
  Age: 57 Year
  Sex: Female
  Weight: 59.42 kg

DRUGS (3)
  1. LORAZEPAM 0.5MG [Concomitant]
     Active Substance: LORAZEPAM
  2. AFINITOR [Suspect]
     Active Substance: EVEROLIMUS
     Indication: BREAST CANCER FEMALE
     Route: 048
     Dates: start: 20191231, end: 20200226
  3. DEXAMETHASONE 1MG [Concomitant]

REACTIONS (3)
  - Fatigue [None]
  - Dyskinesia [None]
  - Stomatitis [None]
